FAERS Safety Report 17297637 (Version 1)
Quarter: 2020Q1

REPORT INFORMATION
  Report Type: Other
  Country: CA (occurrence: CA)
  Receive Date: 20200122
  Receipt Date: 20200122
  Transmission Date: 20200409
  Serious: Yes (Hospitalization, Other)
  Sender: FDA-Public Use
  Company Number: CA-LUPIN HEALTHCARE (UK) LIMITED-2020-00228

PATIENT
  Age: 79 Year
  Sex: Female

DRUGS (4)
  1. ERGOCALCIFEROL. [Suspect]
     Active Substance: ERGOCALCIFEROL
     Indication: SUPPLEMENTATION THERAPY
     Dosage: UNK
     Route: 048
  2. EXJADE [Suspect]
     Active Substance: DEFERASIROX
     Indication: IRON OVERLOAD
     Dosage: UNK
     Route: 048
  3. CEPHALEXIN. [Suspect]
     Active Substance: CEPHALEXIN
     Indication: INGUINAL MASS
     Dosage: UNK
     Route: 065
  4. CEPHALEXIN. [Suspect]
     Active Substance: CEPHALEXIN
     Indication: GROIN INFECTION
     Dosage: (TABLET)
     Route: 065

REACTIONS (4)
  - Myocardial ischaemia [Not Recovered/Not Resolved]
  - Urinary tract infection [Not Recovered/Not Resolved]
  - Electrocardiogram abnormal [Not Recovered/Not Resolved]
  - Ventricular extrasystoles [Not Recovered/Not Resolved]
